FAERS Safety Report 16168177 (Version 1)
Quarter: 2019Q2

REPORT INFORMATION
  Report Type: Spontaneous
  Country: US (occurrence: US)
  Receive Date: 20190408
  Receipt Date: 20190408
  Transmission Date: 20190711
  Serious: No
  Sender: FDA-Public Use
  Company Number: US-PFIZER INC-2019107063

PATIENT
  Age: 16 Year
  Sex: Male

DRUGS (2)
  1. GENOTROPIN [Suspect]
     Active Substance: SOMATROPIN
     Indication: NEUROFIBROMATOSIS
     Dosage: 0.8 MG, DAILY
     Dates: start: 20180309
  2. GENOTROPIN [Suspect]
     Active Substance: SOMATROPIN
     Indication: OPTIC GLIOMA

REACTIONS (1)
  - Drug effective for unapproved indication [Unknown]
